FAERS Safety Report 21577774 (Version 1)
Quarter: 2022Q4

REPORT INFORMATION
  Report Type: Spontaneous
  Country: IT (occurrence: IT)
  Receive Date: 20221110
  Receipt Date: 20221110
  Transmission Date: 20230113
  Serious: Yes (Other)
  Sender: FDA-Public Use
  Company Number: IT-CELLTRION INC.-2022IT018471

PATIENT

DRUGS (1)
  1. RITUXIMAB [Suspect]
     Active Substance: RITUXIMAB
     Indication: B-cell lymphoma
     Dosage: 375 MG

REACTIONS (3)
  - Oral lichenoid reaction [Not Recovered/Not Resolved]
  - Papule [Not Recovered/Not Resolved]
  - Arthralgia [Not Recovered/Not Resolved]
